FAERS Safety Report 13147738 (Version 1)
Quarter: 2017Q1

REPORT INFORMATION
  Report Type: Spontaneous
  Country: NL (occurrence: NL)
  Receive Date: 20170125
  Receipt Date: 20170125
  Transmission Date: 20170428
  Serious: Yes (Other)
  Sender: FDA-Public Use
  Company Number: NL-ASTRAZENECA-2017SE07323

PATIENT
  Age: 26287 Day
  Sex: Male

DRUGS (5)
  1. ZOLADEX [Suspect]
     Active Substance: GOSERELIN ACETATE
     Indication: HORMONE-DEPENDENT PROSTATE CANCER
     Dosage: 10.8 MG, EVERY 3 MONTHS
     Route: 058
     Dates: start: 20160222
  2. ZOLADEX [Suspect]
     Active Substance: GOSERELIN ACETATE
     Indication: HORMONE-DEPENDENT PROSTATE CANCER
     Dosage: 10.8 MG,  EVERY 3 MONTHS
     Route: 058
     Dates: start: 20170116
  3. ZOLADEX [Suspect]
     Active Substance: GOSERELIN ACETATE
     Indication: HORMONE-DEPENDENT PROSTATE CANCER
     Dosage: 10.8 MG,  EVERY 3 MONTHS
     Route: 058
     Dates: start: 20161019
  4. PAIN RELIEF MEDICATION [Concomitant]
     Indication: PAIN
  5. ZOLADEX [Suspect]
     Active Substance: GOSERELIN ACETATE
     Indication: HORMONE-DEPENDENT PROSTATE CANCER
     Dosage: 10.8 MG,  EVERY 3 MONTHS
     Route: 058
     Dates: start: 20160421

REACTIONS (1)
  - Malignant neoplasm progression [Not Recovered/Not Resolved]

NARRATIVE: CASE EVENT DATE: 20161228
